FAERS Safety Report 7246176-2 (Version None)
Quarter: 2011Q1

REPORT INFORMATION
  Report Type: 
  Country: None (occurrence: None)
  Receive Date: 20110126
  Receipt Date: 20110119
  Transmission Date: 20110831
  Serious: Yes (Other)
  Sender: FDA-Public Use
  Company Number: A0908812A

PATIENT
  Sex: Female

DRUGS (1)
  1. PAXIL [Suspect]
     Indication: DEPRESSION
     Route: 048

REACTIONS (11)
  - ABORTION SPONTANEOUS [None]
  - MYALGIA [None]
  - FOOD CRAVING [None]
  - HEADACHE [None]
  - DRUG EXPOSURE DURING PREGNANCY [None]
  - TOBACCO USER [None]
  - WITHDRAWAL SYNDROME [None]
  - INSOMNIA [None]
  - WEIGHT INCREASED [None]
  - PALPITATIONS [None]
  - ANXIETY [None]
